FAERS Safety Report 20557214 (Version 1)
Quarter: 2022Q1

REPORT INFORMATION
  Report Type: Spontaneous
  Country: CH (occurrence: CH)
  Receive Date: 20220307
  Receipt Date: 20220307
  Transmission Date: 20220423
  Serious: Yes (Other)
  Sender: FDA-Public Use
  Company Number: CH-KYOWAKIRIN-2022BKK002698

PATIENT

DRUGS (2)
  1. POTELIGEO [Suspect]
     Active Substance: MOGAMULIZUMAB-KPKC
     Indication: Cutaneous T-cell lymphoma
     Dosage: 80 MG, EVERY 7 DAYS
     Route: 065
     Dates: start: 20210729, end: 20210819
  2. POTELIGEO [Suspect]
     Active Substance: MOGAMULIZUMAB-KPKC
     Dosage: 80 MG, EVERY 2 WEEKS
     Route: 065
     Dates: start: 20210903, end: 20211001

REACTIONS (5)
  - Metastases to central nervous system [Unknown]
  - Spinal cord oedema [Unknown]
  - Condition aggravated [Unknown]
  - Malignant neoplasm progression [Unknown]
  - Drug ineffective [Unknown]

NARRATIVE: CASE EVENT DATE: 20210101
